FAERS Safety Report 9491845 (Version 2)
Quarter: 2013Q3

REPORT INFORMATION
  Report Type: Not Available
  Country: US (occurrence: US)
  Receive Date: 20130919
  Receipt Date: 20130919
  Transmission Date: 20140515
  Serious: No
  Sender: FDA-Public Use
  Company Number: US-LUNDBECK-DKLU1083624

PATIENT
  Age: 38 Year
  Sex: Female
  Weight: 86 kg

DRUGS (12)
  1. SABRIL [Suspect]
     Indication: COMPLEX PARTIAL SEIZURES
     Route: 048
     Dates: start: 20120710, end: 20120717
  2. SABRIL [Suspect]
     Route: 048
     Dates: start: 20120718, end: 20120723
  3. SABRIL [Suspect]
     Route: 048
     Dates: start: 20120718, end: 20120723
  4. CITALOPRAM [Concomitant]
     Indication: DEPRESSION
     Route: 048
     Dates: start: 20120517
  5. LEVOTHYROXINE [Concomitant]
     Indication: HYPOTHYROIDISM
     Route: 048
     Dates: start: 20120530
  6. ZONISAMIDE [Concomitant]
     Indication: EPILEPSY
     Route: 048
     Dates: start: 20120517
  7. ZONISAMIDE [Concomitant]
     Route: 048
     Dates: start: 20120517
  8. OXCARBAZEPINE [Concomitant]
     Indication: EPILEPSY
     Route: 048
     Dates: start: 20120517
  9. OXCARBAZEPINE [Concomitant]
     Route: 048
     Dates: start: 20120517
  10. FERROUS SULFATE [Concomitant]
     Indication: VITAMIN SUPPLEMENTATION
     Route: 048
     Dates: start: 20120203
  11. FOLIC ACID [Concomitant]
     Indication: VITAMIN SUPPLEMENTATION
     Dates: start: 20120730
  12. PRENATAL VITAMINS [Concomitant]
     Indication: VITAMIN SUPPLEMENTATION
     Route: 048
     Dates: start: 20120730

REACTIONS (1)
  - Pregnancy [Recovered/Resolved]
